FAERS Safety Report 7912790-1 (Version None)
Quarter: 2011Q4

REPORT INFORMATION
  Report Type: 
  Country: None (occurrence: None)
  Receive Date: 20111114
  Receipt Date: 20111102
  Transmission Date: 20120403
  Serious: Yes (Hospitalization)
  Sender: FDA-Public Use
  Company Number: US-GLAXOSMITHKLINE-A0906006A

PATIENT
  Age: 48 Year
  Sex: Male
  Weight: 118.2 kg

DRUGS (1)
  1. AVANDIA [Suspect]
     Indication: DIABETES MELLITUS
     Dosage: 8MG PER DAY
     Route: 048
     Dates: start: 20010101, end: 20030101

REACTIONS (8)
  - CORONARY ARTERY BYPASS [None]
  - CEREBROVASCULAR ACCIDENT [None]
  - IMPLANTABLE DEFIBRILLATOR INSERTION [None]
  - VENTRICULAR TACHYCARDIA [None]
  - TRANSIENT ISCHAEMIC ATTACK [None]
  - MYOCARDIAL INFARCTION [None]
  - CARDIAC FAILURE CONGESTIVE [None]
  - RENAL FAILURE [None]
